FAERS Safety Report 4733072-5 (Version None)
Quarter: 2005Q3

REPORT INFORMATION
  Report Type: 
  Country: None (occurrence: None)
  Receive Date: 20050801
  Receipt Date: 20050801
  Transmission Date: 20060218
  Serious: Yes (Other)
  Sender: FDA-Public Use
  Company Number: None

PATIENT
  Age: 56 Year
  Sex: Female
  Weight: 38 kg

DRUGS (3)
  1. FORTAZ [Suspect]
     Indication: LUNG INFECTION PSEUDOMONAL
     Dosage: 1 GRAM IV
     Route: 042
     Dates: start: 20050719, end: 20050728
  2. FORTAZ [Suspect]
  3. VANCOMYCIN [Concomitant]

REACTIONS (1)
  - RASH ERYTHEMATOUS [None]
